FAERS Safety Report 8433900-6 (Version None)
Quarter: 2012Q2

REPORT INFORMATION
  Report Type: 
  Country: None (occurrence: None)
  Receive Date: 20120323
  Receipt Date: 20110622
  Transmission Date: 20120825
  Serious: Yes (Hospitalization)
  Sender: FDA-Public Use
  Company Number: 163-21880-11062954

PATIENT
  Age: 73 Year
  Sex: Female

DRUGS (2)
  1. LENALIDOMIDE [Suspect]
     Indication: MULTIPLE MYELOMA
     Dosage: PO, 15 MG, 1 IN 1 D, PO
     Route: 048
     Dates: start: 20100101, end: 20100101
  2. LENALIDOMIDE [Suspect]
     Indication: MULTIPLE MYELOMA
     Dosage: PO, 15 MG, 1 IN 1 D, PO
     Route: 048
     Dates: start: 20110607, end: 20110616

REACTIONS (2)
  - CARDIAC FAILURE CONGESTIVE [None]
  - FULL BLOOD COUNT DECREASED [None]
